FAERS Safety Report 6471539-2 (Version None)
Quarter: 2009Q4

REPORT INFORMATION
  Report Type: 
  Country: None (occurrence: None)
  Receive Date: 20091203
  Receipt Date: 20091130
  Transmission Date: 20100525
  Serious: Yes (Hospitalization)
  Sender: FDA-Public Use
  Company Number: DE-WYE-G03297109

PATIENT
  Sex: Female
  Weight: 64 kg

DRUGS (2)
  1. RAPAMUNE [Suspect]
     Indication: LYMPHANGIOLEIOMYOMATOSIS
     Route: 048
     Dates: start: 20080401, end: 20090228
  2. RAPAMUNE [Suspect]
     Route: 048
     Dates: start: 20090716

REACTIONS (5)
  - BULLOUS LUNG DISEASE [None]
  - DRUG EXPOSURE DURING PREGNANCY [None]
  - PLACENTAL CHORIOANGIOMA [None]
  - PLEURAL EFFUSION [None]
  - PNEUMOTHORAX [None]
